FAERS Safety Report 24014867 (Version 2)
Quarter: 2024Q3

REPORT INFORMATION
  Report Type: Spontaneous
  Country: JP (occurrence: JP)
  Receive Date: 20240626
  Receipt Date: 20240705
  Transmission Date: 20241017
  Serious: No
  Sender: CSL BEHRING
  Company Number: JP-BEH-2024174607

PATIENT
  Sex: Female

DRUGS (1)
  1. HIZENTRA [Suspect]
     Active Substance: HUMAN IMMUNOGLOBULIN G
     Indication: Hypogammaglobulinaemia
     Dosage: 8 G /40 ML, QW
     Route: 058

REACTIONS (1)
  - Haematological malignancy [Fatal]
